FAERS Safety Report 10197293 (Version 1)
Quarter: 2014Q2

REPORT INFORMATION
  Report Type: Spontaneous
  Country: US (occurrence: None)
  Receive Date: 20140523
  Receipt Date: 20140523
  Transmission Date: 20141212
  Serious: No
  Sender: FDA-Public Use
  Company Number: None

PATIENT
  Sex: Female

DRUGS (2)
  1. DULOXETINE [Suspect]
     Indication: DEPRESSION
     Route: 048
     Dates: start: 20140301, end: 20140519
  2. DULOXETINE [Suspect]
     Indication: MIGRAINE PROPHYLAXIS
     Route: 048
     Dates: start: 20140301, end: 20140519

REACTIONS (5)
  - Depressive symptom [None]
  - Disease recurrence [None]
  - Headache [None]
  - Product substitution issue [None]
  - Product quality issue [None]
